FAERS Safety Report 7901371-1 (Version None)
Quarter: 2011Q4

REPORT INFORMATION
  Report Type: 
  Country: None (occurrence: None)
  Receive Date: 20111108
  Receipt Date: 20111027
  Transmission Date: 20120403
  Serious: Yes (Hospitalization)
  Sender: FDA-Public Use
  Company Number: PHHO2011NL17452

PATIENT
  Sex: Male
  Weight: 93 kg

DRUGS (7)
  1. BLINDED NO TREATMENT RECEIVED [Suspect]
     Indication: CARDIOVASCULAR DISORDER
     Dosage: CODE NOT BROKEN
     Route: 048
     Dates: start: 20080521
  2. BLINDED PLACEBO [Suspect]
     Indication: CARDIOVASCULAR DISORDER
     Dosage: CODE NOT BROKEN
     Route: 048
     Dates: start: 20080521
  3. PREDNISONE [Suspect]
     Indication: CHRONIC OBSTRUCTIVE PULMONARY DISEASE
     Dosage: 30 MG, QD
     Dates: start: 20090101, end: 20110927
  4. PREDNISONE [Suspect]
     Dosage: 20 MG, QD
     Dates: start: 20111005
  5. BLINDED ALISKIREN [Suspect]
     Indication: CARDIOVASCULAR DISORDER
     Dosage: CODE NOT BROKEN
     Route: 048
     Dates: start: 20080521
  6. BUMETANIDE [Concomitant]
     Dosage: UNK
     Dates: start: 20111005
  7. BUMETANIDE [Concomitant]
     Indication: CARDIAC FAILURE
     Dosage: 4 MG, QD
     Dates: start: 20090101, end: 20110927

REACTIONS (3)
  - CONCOMITANT DISEASE PROGRESSION [None]
  - CHRONIC OBSTRUCTIVE PULMONARY DISEASE [None]
  - CARDIAC FAILURE [None]
